FAERS Safety Report 4675452-2 (Version None)
Quarter: 2005Q2

REPORT INFORMATION
  Report Type: 
  Country: None (occurrence: None)
  Receive Date: 20050527
  Receipt Date: 20050311
  Transmission Date: 20051028
  Serious: No
  Sender: FDA-Public Use
  Company Number: US-BRISTOL-MYERS SQUIBB COMPANY-12895660

PATIENT
  Age: 20 Year
  Sex: Male
  Weight: 113 kg

DRUGS (3)
  1. ABILIFY [Suspect]
     Dates: start: 20040101, end: 20050308
  2. BUSPAR TABS 30 MG [Concomitant]
  3. TRILEPTAL [Concomitant]

REACTIONS (9)
  - DYSARTHRIA [None]
  - NAUSEA [None]
  - OBSESSIVE-COMPULSIVE DISORDER [None]
  - RESTLESSNESS [None]
  - SOMNOLENCE [None]
  - TARDIVE DYSKINESIA [None]
  - THOUGHT BLOCKING [None]
  - VISUAL ACUITY REDUCED [None]
  - VOMITING [None]
